FAERS Safety Report 21160178 (Version 2)
Quarter: 2022Q3

REPORT INFORMATION
  Report Type: Spontaneous
  Country: ES (occurrence: ES)
  Receive Date: 20220802
  Receipt Date: 20220907
  Transmission Date: 20221027
  Serious: Yes (Death, Other)
  Sender: FDA-Public Use
  Company Number: ES-BRISTOL-MYERS SQUIBB COMPANY-2022-083619

PATIENT
  Age: 55 Year
  Sex: Female
  Weight: 78 kg

DRUGS (14)
  1. AZACITIDINE [Suspect]
     Active Substance: AZACITIDINE
     Indication: Acute myeloid leukaemia
     Dosage: 134MG, QD
     Route: 042
     Dates: start: 20220505
  2. AZACITIDINE [Suspect]
     Active Substance: AZACITIDINE
     Dosage: 134MG, QD
     Route: 042
     Dates: start: 20220511, end: 20220511
  3. BGB-11417 [Suspect]
     Active Substance: BGB-11417
     Indication: Acute myeloid leukaemia
     Dosage: 20MG, QD
     Route: 048
     Dates: start: 20220505
  4. BGB-11417 [Suspect]
     Active Substance: BGB-11417
     Dosage: 160MG, QD
     Route: 048
     Dates: start: 20220508, end: 20220514
  5. BGB-11417 [Suspect]
     Active Substance: BGB-11417
     Dosage: 160 MILLIGRAM, QD
     Route: 048
     Dates: start: 20220514
  6. ALLOPURINOL [Concomitant]
     Active Substance: ALLOPURINOL
     Indication: Dyslipidaemia
     Dosage: UNK
     Route: 048
     Dates: start: 20220330
  7. COTRIMOXAZOLE [Concomitant]
     Active Substance: SULFAMETHOXAZOLE\TRIMETHOPRIM
     Indication: Infection prophylaxis
     Dosage: UNK
     Route: 048
     Dates: start: 20220330
  8. COTRIMOXAZOLE [Concomitant]
     Active Substance: SULFAMETHOXAZOLE\TRIMETHOPRIM
     Dosage: UNK
     Route: 048
     Dates: start: 20220518, end: 20220605
  9. ACYCLOVIR [Concomitant]
     Active Substance: ACYCLOVIR
     Indication: Infection prophylaxis
     Dosage: UNK
     Route: 048
     Dates: start: 20220330
  10. SULFAMETHOXAZOLE\TRIMETHOPRIM [Concomitant]
     Active Substance: SULFAMETHOXAZOLE\TRIMETHOPRIM
     Indication: Infection prophylaxis
     Dosage: UNK
     Route: 048
     Dates: start: 20220330
  11. FAMOTIDINE [Concomitant]
     Active Substance: FAMOTIDINE
     Indication: Gastritis prophylaxis
     Dosage: UNK
     Route: 048
     Dates: start: 20220330
  12. FAMOTIDINE [Concomitant]
     Active Substance: FAMOTIDINE
     Indication: Oedema peripheral
  13. SIMVASTATIN [Concomitant]
     Active Substance: SIMVASTATIN
     Indication: Dyslipidaemia
     Dosage: UNK
     Route: 048
     Dates: start: 20211206
  14. HYDROXYUREA [Concomitant]
     Active Substance: HYDROXYUREA
     Indication: Disease progression
     Dosage: UNK
     Route: 048
     Dates: start: 20220601

REACTIONS (1)
  - Acute myeloid leukaemia [Fatal]

NARRATIVE: CASE EVENT DATE: 20220705
